FAERS Safety Report 24568406 (Version 1)
Quarter: 2024Q4

REPORT INFORMATION
  Report Type: Spontaneous
  Country: IT (occurrence: IT)
  Receive Date: 20241031
  Receipt Date: 20241031
  Transmission Date: 20250114
  Serious: Yes (Other)
  Sender: ROCHE
  Company Number: IT-ROCHE-10000116830

PATIENT
  Age: 68 Year
  Sex: Male

DRUGS (1)
  1. TECENTRIQ [Suspect]
     Active Substance: ATEZOLIZUMAB
     Indication: Non-small cell lung cancer metastatic
     Dosage: TECENTRIQ WAS GIVEN BETWEEN MAY 2022 + MAY 2024.
     Route: 065
     Dates: start: 202205

REACTIONS (3)
  - Pneumonia [Unknown]
  - Ill-defined disorder [Unknown]
  - Pulmonary mass [Unknown]

NARRATIVE: CASE EVENT DATE: 20231001
